FAERS Safety Report 25613977 (Version 1)
Quarter: 2025Q3

REPORT INFORMATION
  Report Type: Spontaneous
  Country: EU (occurrence: EU)
  Receive Date: 20250728
  Receipt Date: 20250728
  Transmission Date: 20251020
  Serious: Yes (Hospitalization)
  Sender: MYLAN
  Company Number: None

PATIENT
  Age: 34 Year
  Sex: Female

DRUGS (20)
  1. VENLAFAXINE [Suspect]
     Active Substance: VENLAFAXINE HYDROCHLORIDE
     Indication: Depression
     Dosage: 75 MILLIGRAM, QD
     Dates: start: 20250605, end: 20250611
  2. VENLAFAXINE [Suspect]
     Active Substance: VENLAFAXINE HYDROCHLORIDE
     Dosage: 75 MILLIGRAM, QD
     Route: 048
     Dates: start: 20250605, end: 20250611
  3. VENLAFAXINE [Suspect]
     Active Substance: VENLAFAXINE HYDROCHLORIDE
     Dosage: 75 MILLIGRAM, QD
     Route: 048
     Dates: start: 20250605, end: 20250611
  4. VENLAFAXINE [Suspect]
     Active Substance: VENLAFAXINE HYDROCHLORIDE
     Dosage: 75 MILLIGRAM, QD
     Dates: start: 20250605, end: 20250611
  5. RISPERIDONE [Suspect]
     Active Substance: RISPERIDONE
     Indication: Delirium
     Dosage: 2 MILLIGRAM, QD
     Dates: start: 20250603, end: 20250610
  6. RISPERIDONE [Suspect]
     Active Substance: RISPERIDONE
     Dosage: 2 MILLIGRAM, QD
     Route: 048
     Dates: start: 20250603, end: 20250610
  7. RISPERIDONE [Suspect]
     Active Substance: RISPERIDONE
     Dosage: 2 MILLIGRAM, QD
     Route: 048
     Dates: start: 20250603, end: 20250610
  8. RISPERIDONE [Suspect]
     Active Substance: RISPERIDONE
     Dosage: 2 MILLIGRAM, QD
     Dates: start: 20250603, end: 20250610
  9. DIAZEPAM [Suspect]
     Active Substance: DIAZEPAM
     Indication: Anxiety
     Dosage: 90 GTT DROPS, QD
     Dates: start: 20250605, end: 20250611
  10. DIAZEPAM [Suspect]
     Active Substance: DIAZEPAM
     Dosage: 90 GTT DROPS, QD
     Dates: start: 20250605, end: 20250611
  11. DIAZEPAM [Suspect]
     Active Substance: DIAZEPAM
     Dosage: 90 GTT DROPS, QD
     Route: 048
     Dates: start: 20250605, end: 20250611
  12. DIAZEPAM [Suspect]
     Active Substance: DIAZEPAM
     Dosage: 90 GTT DROPS, QD
     Route: 048
     Dates: start: 20250605, end: 20250611
  13. DIAZEPAM [Suspect]
     Active Substance: DIAZEPAM
     Dosage: 30 GTT DROPS, QD
     Dates: start: 20250612
  14. DIAZEPAM [Suspect]
     Active Substance: DIAZEPAM
     Dosage: 30 GTT DROPS, QD
     Dates: start: 20250612
  15. DIAZEPAM [Suspect]
     Active Substance: DIAZEPAM
     Dosage: 30 GTT DROPS, QD
     Route: 048
     Dates: start: 20250612
  16. DIAZEPAM [Suspect]
     Active Substance: DIAZEPAM
     Dosage: 30 GTT DROPS, QD
     Route: 048
     Dates: start: 20250612
  17. SERTRALINE HYDROCHLORIDE [Concomitant]
     Active Substance: SERTRALINE HYDROCHLORIDE
     Dates: start: 20250508, end: 20250605
  18. SERTRALINE HYDROCHLORIDE [Concomitant]
     Active Substance: SERTRALINE HYDROCHLORIDE
     Route: 048
     Dates: start: 20250508, end: 20250605
  19. SERTRALINE HYDROCHLORIDE [Concomitant]
     Active Substance: SERTRALINE HYDROCHLORIDE
     Route: 048
     Dates: start: 20250508, end: 20250605
  20. SERTRALINE HYDROCHLORIDE [Concomitant]
     Active Substance: SERTRALINE HYDROCHLORIDE
     Dates: start: 20250508, end: 20250605

REACTIONS (2)
  - Extrapyramidal disorder [Not Recovered/Not Resolved]
  - Brain stem syndrome [Not Recovered/Not Resolved]

NARRATIVE: CASE EVENT DATE: 20250606
